FAERS Safety Report 8466479-3 (Version None)
Quarter: 2012Q2

REPORT INFORMATION
  Report Type: 
  Country: None (occurrence: None)
  Receive Date: 20120626
  Receipt Date: 20120621
  Transmission Date: 20120825
  Serious: Yes (Hospitalization)
  Sender: FDA-Public Use
  Company Number: PHHY2012TR053719

PATIENT
  Age: 6 Year
  Sex: Male

DRUGS (1)
  1. CLARITHROMYCIN [Suspect]
     Indication: PNEUMONIA PRIMARY ATYPICAL

REACTIONS (3)
  - SYNCOPE [None]
  - LONG QT SYNDROME [None]
  - CARDIAC MURMUR [None]
